FAERS Safety Report 5830459-4 (Version None)
Quarter: 2008Q3

REPORT INFORMATION
  Report Type: 
  Country: None (occurrence: None)
  Receive Date: 20080801
  Receipt Date: 20080722
  Transmission Date: 20090109
  Serious: Yes (Other)
  Sender: FDA-Public Use
  Company Number: GB-ELI_LILLY_AND_COMPANY-GB200805002091

PATIENT
  Sex: Male
  Weight: 24 kg

DRUGS (6)
  1. STRATTERA [Suspect]
     Indication: ATTENTION DEFICIT/HYPERACTIVITY DISORDER
     Dosage: 28 MG, UNKNOWN
     Route: 048
     Dates: start: 20071108, end: 20080111
  2. RITALIN [Concomitant]
     Indication: ATTENTION DEFICIT/HYPERACTIVITY DISORDER
     Dosage: UNK, UNKNOWN
     Route: 065
     Dates: start: 20030101, end: 20080111
  3. CONCERTA [Concomitant]
     Indication: ATTENTION DEFICIT/HYPERACTIVITY DISORDER
     Dosage: 72 MG, UNKNOWN
     Route: 048
     Dates: start: 20061116, end: 20071219
  4. CONCERTA [Concomitant]
     Dosage: 54 MG, UNKNOWN
     Route: 048
     Dates: start: 20071219, end: 20071226
  5. CONCERTA [Concomitant]
     Dosage: 36 MG, UNKNOWN
     Route: 048
     Dates: start: 20071226, end: 20080102
  6. CONCERTA [Concomitant]
     Dosage: 18 MG, UNKNOWN
     Route: 048
     Dates: start: 20080102, end: 20080111

REACTIONS (2)
  - ATTENTION DEFICIT/HYPERACTIVITY DISORDER [None]
  - ELECTROCARDIOGRAM QT PROLONGED [None]
